FAERS Safety Report 8094454-X (Version None)
Quarter: 2012Q1

REPORT INFORMATION
  Report Type: 
  Country: None (occurrence: None)
  Receive Date: 20120130
  Receipt Date: 20120119
  Transmission Date: 20120608
  Serious: Yes (Other)
  Sender: FDA-Public Use
  Company Number: IT-TEVA-319211ISR

PATIENT
  Sex: Male

DRUGS (8)
  1. DECADRON [Concomitant]
     Dosage: 4 MG/ML
     Route: 042
  2. CARBOPLATIN [Suspect]
     Indication: LUNG NEOPLASM MALIGNANT
     Dosage: 185 MILLIGRAM; EVERY CYCLE
     Route: 042
     Dates: start: 20110129, end: 20111031
  3. EPROSARTAN MESYLATE [Concomitant]
  4. FOLIN GRAV [Concomitant]
  5. ALIMTA [Suspect]
     Indication: LUNG NEOPLASM MALIGNANT
     Dosage: 450 MILLIGRAM; EVERY CYCLE
     Route: 042
     Dates: start: 20110129, end: 20111031
  6. DOBETIN [Concomitant]
     Dosage: 1000 UG
  7. ADALAT [Concomitant]
     Dosage: 30 MG
     Route: 048
  8. NAVOBAN [Concomitant]

REACTIONS (3)
  - ASTHENIA [None]
  - RENAL FAILURE [None]
  - HYPERPYREXIA [None]
